FAERS Safety Report 10360029 (Version 1)
Quarter: 2014Q3

REPORT INFORMATION
  Report Type: Spontaneous
  Country: IN (occurrence: None)
  Receive Date: 20140730
  Receipt Date: 20140730
  Transmission Date: 20150326
  Serious: Yes (Hospitalization)
  Sender: FDA-Public Use
  Company Number: IPC201417-000378

PATIENT
  Age: 3 Day

DRUGS (1)
  1. LOSARTAN (LOSARTAN) (LOSARTAN) [Suspect]
     Active Substance: LOSARTAN
     Route: 064

REACTIONS (2)
  - Maternal drugs affecting foetus [None]
  - Renal failure neonatal [None]
